FAERS Safety Report 16982395 (Version 3)
Quarter: 2019Q4

REPORT INFORMATION
  Report Type: Spontaneous
  Country: US (occurrence: US)
  Receive Date: 20191101
  Receipt Date: 20191225
  Transmission Date: 20200122
  Serious: No
  Sender: FDA-Public Use
  Company Number: US-BIOGEN-2019BI00801540

PATIENT
  Sex: Male

DRUGS (1)
  1. TYSABRI [Suspect]
     Active Substance: NATALIZUMAB
     Indication: MULTIPLE SCLEROSIS
     Route: 065
     Dates: start: 20171214, end: 20190227

REACTIONS (4)
  - Infection [Recovered/Resolved]
  - Gait disturbance [Unknown]
  - Dysstasia [Unknown]
  - Multiple sclerosis [Unknown]
